FAERS Safety Report 9459097 (Version 1)
Quarter: 2013Q3

REPORT INFORMATION
  Report Type: Report from Study
  Country: US (occurrence: US)
  Receive Date: 20130814
  Receipt Date: 20130814
  Transmission Date: 20140515
  Serious: Yes (Other)
  Sender: FDA-Public Use
  Company Number: US-ROCHE-1261077

PATIENT
  Sex: Female

DRUGS (13)
  1. RITUXIMAB [Suspect]
     Indication: PRODUCT USED FOR UNKNOWN INDICATION
     Dosage: 01-JUL-2013 INFUSION, 10 MG/ML CONC INFUSION
     Route: 042
  2. CYANOCOBALAMIN [Concomitant]
     Dosage: USE AS DIRECTED X 3 DAYS, 1000 MCG/ML SOLUTION
     Route: 058
  3. BISOPROLOL FUMARATE [Concomitant]
     Route: 065
  4. FOLIC ACID [Concomitant]
     Dosage: AS NEEDED
     Route: 065
  5. GABAPENTIN [Concomitant]
     Dosage: AT BEDTIME
     Route: 048
  6. METHOTREXATE SODIUM [Concomitant]
     Dosage: CC
     Route: 058
  7. MORPHINE SULFATE [Concomitant]
     Route: 048
  8. MORPHINE SULFATE [Concomitant]
     Dosage: TBCR
     Route: 048
  9. OXYCODONE HCL [Concomitant]
     Route: 048
  10. PREDNISONE [Concomitant]
     Route: 048
  11. PREDNISONE [Concomitant]
     Dosage: AS DIRECTED, 5 MG TABLETS
     Route: 048
  12. PROTONIX (UNITED STATES) [Concomitant]
     Route: 065
  13. SULFASALAZINE [Concomitant]
     Route: 048

REACTIONS (4)
  - Osteonecrosis [Unknown]
  - Pain [Unknown]
  - Tenderness [Unknown]
  - Arthralgia [Unknown]
